FAERS Safety Report 5427531-X (Version None)
Quarter: 2007Q3

REPORT INFORMATION
  Report Type: 
  Country: None (occurrence: None)
  Receive Date: 20070828
  Receipt Date: 20070820
  Transmission Date: 20080115
  Serious: Yes (Hospitalization)
  Sender: FDA-Public Use
  Company Number: FR-ASTRAZENECA-2007CG01203

PATIENT
  Age: 20658 Day
  Sex: Male

DRUGS (3)
  1. NEXIUM [Suspect]
     Route: 048
     Dates: start: 20070509, end: 20070607
  2. PARFENAC [Suspect]
     Route: 061
     Dates: start: 20070608, end: 20070608
  3. DEBRIDAT [Concomitant]
     Route: 048
     Dates: start: 20070509, end: 20070607

REACTIONS (4)
  - CONDITION AGGRAVATED [None]
  - PRURITUS [None]
  - PURPURA [None]
  - RASH MACULO-PAPULAR [None]
